FAERS Safety Report 7128529-6 (Version None)
Quarter: 2010Q4

REPORT INFORMATION
  Report Type: 
  Country: None (occurrence: None)
  Receive Date: 20101130
  Receipt Date: 20101122
  Transmission Date: 20110411
  Serious: Yes (Other)
  Sender: FDA-Public Use
  Company Number: US-SANOFI-AVENTIS-2010SA055922

PATIENT
  Age: 84 Year
  Sex: Female

DRUGS (2)
  1. LANTUS [Suspect]
     Dosage: DOSE:50 UNIT(S)
     Route: 058
     Dates: start: 19930101
  2. OPTICLICK [Suspect]
     Dates: start: 19930101

REACTIONS (9)
  - BLOOD GLUCOSE DECREASED [None]
  - BLOOD GLUCOSE INCREASED [None]
  - DIABETIC RETINOPATHY [None]
  - DYSGRAPHIA [None]
  - EYE HAEMORRHAGE [None]
  - HEADACHE [None]
  - HEARING IMPAIRED [None]
  - MEDICAL DEVICE COMPLICATION [None]
  - VISUAL IMPAIRMENT [None]
